FAERS Safety Report 4347941-1 (Version None)
Quarter: 2004Q2

REPORT INFORMATION
  Report Type: 
  Country: None (occurrence: None)
  Receive Date: 20040422
  Receipt Date: 20040412
  Transmission Date: 20050107
  Serious: Yes (Hospitalization, Other)
  Sender: FDA-Public Use
  Company Number: HQWYE662909MAR04

PATIENT
  Age: 15 Year
  Sex: Female

DRUGS (1)
  1. EFFEXOR XR [Suspect]
     Indication: DEPRESSION
     Dosage: 225 MG 1 X PER 1 DAY, ORAL
     Route: 048
     Dates: start: 20030101

REACTIONS (6)
  - ANGIONEUROTIC OEDEMA [None]
  - RASH [None]
  - SEASONAL ALLERGY [None]
  - SKIN LESION [None]
  - SWELLING [None]
  - URTICARIA [None]
